FAERS Safety Report 8432043-5 (Version None)
Quarter: 2012Q2

REPORT INFORMATION
  Report Type: 
  Country: None (occurrence: None)
  Receive Date: 20120613
  Receipt Date: 20120601
  Transmission Date: 20120825
  Serious: Yes (Other)
  Sender: FDA-Public Use
  Company Number: US-JNJFOC-20120601998

PATIENT
  Sex: Male
  Weight: 90.72 kg

DRUGS (2)
  1. UNKNOWN MEDICATION [Concomitant]
     Route: 065
  2. REMICADE [Suspect]
     Indication: RHEUMATOID ARTHRITIS
     Route: 042
     Dates: start: 20120101, end: 20120301

REACTIONS (4)
  - ATAXIA [None]
  - TREMOR [None]
  - AMNESIA [None]
  - MEMORY IMPAIRMENT [None]
